FAERS Safety Report 23062298 (Version 1)
Quarter: 2023Q4

REPORT INFORMATION
  Report Type: Spontaneous
  Country: US (occurrence: US)
  Receive Date: 20231013
  Receipt Date: 20231013
  Transmission Date: 20240110
  Serious: No
  Sender: FDA-Public Use
  Company Number: US-Shield TX (UK) Ltd-US-STX-23-00014

PATIENT
  Age: 75 Year
  Sex: Male

DRUGS (10)
  1. ACCRUFER [Suspect]
     Active Substance: FERRIC MALTOL
     Indication: Blood iron decreased
     Dosage: 1 DOSAGE FORM, BID  |  DAILY DOSE UNIT : DOSAGE FORMS  |  UNIT DOSE UNIT : DOSAGE FORMS
     Route: 048
     Dates: start: 20230225, end: 20230315
  2. POTASSIUM CHLORIDE [Concomitant]
     Active Substance: POTASSIUM CHLORIDE
     Indication: Product used for unknown indication
     Dosage: UNK UNK
  3. ALPRAZOLAM [Concomitant]
     Active Substance: ALPRAZOLAM
     Indication: Product used for unknown indication
     Dosage: UNK UNK
  4. DICLOFENAC SODIUM [Concomitant]
     Active Substance: DICLOFENAC\DICLOFENAC SODIUM
     Indication: Product used for unknown indication
     Dosage: UNK UNK
  5. ANDROGEL [Concomitant]
     Active Substance: TESTOSTERONE
     Indication: Product used for unknown indication
     Dosage: UNK UNK
  6. DOCUSATE SODIUM [Concomitant]
     Active Substance: DOCUSATE SODIUM
     Indication: Product used for unknown indication
     Dosage: UNK UNK
  7. ELAVIL [Concomitant]
     Active Substance: AMITRIPTYLINE HYDROCHLORIDE
     Indication: Product used for unknown indication
     Dosage: UNK UNK
  8. GABAPENTIN [Concomitant]
     Active Substance: GABAPENTIN
     Indication: Product used for unknown indication
     Dosage: UNK UNK
  9. BUPRENORPHINE [Concomitant]
     Active Substance: BUPRENORPHINE
     Indication: Product used for unknown indication
     Dosage: UNK UNK
  10. CITRUCEL [Concomitant]
     Active Substance: METHYLCELLULOSE (4000 MPA.S)
     Indication: Product used for unknown indication
     Dosage: UNK UNK

REACTIONS (7)
  - Hyperhidrosis [Unknown]
  - Hot flush [Unknown]
  - Micturition urgency [Unknown]
  - Pain [Unknown]
  - Constipation [Unknown]
  - Flatulence [Unknown]
  - Abdominal pain upper [Unknown]
